FAERS Safety Report 19459481 (Version 1)
Quarter: 2021Q2

REPORT INFORMATION
  Report Type: Spontaneous
  Country: US (occurrence: US)
  Receive Date: 20210625
  Receipt Date: 20210625
  Transmission Date: 20210717
  Serious: Yes (Death)
  Sender: FDA-Public Use
  Company Number: None

PATIENT
  Age: 83 Year
  Sex: Female

DRUGS (12)
  1. ALLOPURINOL 100 MG [Concomitant]
     Active Substance: ALLOPURINOL
  2. POT CL MICRO 20 MG [Concomitant]
  3. CARVEDILOL 12.5 MG [Concomitant]
     Active Substance: CARVEDILOL
  4. LANSOPRAZOLE 20 MG [Concomitant]
     Active Substance: LANSOPRAZOLE
  5. ESCITALOPRAM [Concomitant]
     Active Substance: ESCITALOPRAM OXALATE
  6. ISOSORB 30 MG [Concomitant]
  7. AMLODIPINE 10 MG [Concomitant]
     Active Substance: AMLODIPINE BESYLATE
  8. RAMIPRIL 10 MG [Concomitant]
     Active Substance: RAMIPRIL
  9. DOFETILIDE. [Suspect]
     Active Substance: DOFETILIDE
     Indication: ATRIAL FIBRILLATION
     Route: 048
  10. FUROSEMIDE 40 MG [Concomitant]
     Active Substance: FUROSEMIDE
  11. FAMOTIDINE 40 MG [Concomitant]
     Active Substance: FAMOTIDINE
  12. ATORVASTATIN 10 MG [Concomitant]
     Active Substance: ATORVASTATIN

REACTIONS (1)
  - Death [None]

NARRATIVE: CASE EVENT DATE: 20210622
